FAERS Safety Report 5735881-2 (Version None)
Quarter: 2008Q2

REPORT INFORMATION
  Report Type: 
  Country: None (occurrence: None)
  Receive Date: 20080509
  Receipt Date: 20080509
  Transmission Date: 20081010
  Serious: Yes (Life-Threatening, Hospitalization)
  Sender: FDA-Public Use
  Company Number: None

PATIENT
  Age: 11 Year
  Sex: Female
  Weight: 41 kg

DRUGS (3)
  1. SULFAMETHOXAZOLE AND TRIMETHOPRIM SINGLE STRENGTH [Suspect]
     Indication: PROPHYLAXIS
     Dosage: 1 TAB -400/80-DAILY PO
     Route: 048
     Dates: start: 20080305, end: 20080320
  2. SULFAMETHOXAZOLE AND TRIMETHOPRIM SINGLE STRENGTH [Suspect]
     Indication: URINARY TRACT INFECTION
     Dosage: 1 TAB -400/80-DAILY PO
     Route: 048
     Dates: start: 20080305, end: 20080320
  3. SULFAMETHOXAZOLE AND TRIMETHOPRIM SINGLE STRENGTH [Suspect]
     Indication: VESICOURETERIC REFLUX
     Dosage: 1 TAB -400/80-DAILY PO
     Route: 048
     Dates: start: 20080305, end: 20080320

REACTIONS (1)
  - TOXIC EPIDERMAL NECROLYSIS [None]
